FAERS Safety Report 25363317 (Version 2)
Quarter: 2025Q2

REPORT INFORMATION
  Report Type: Spontaneous
  Country: GR (occurrence: GR)
  Receive Date: 20250527
  Receipt Date: 20250529
  Transmission Date: 20250717
  Serious: Yes (Other)
  Sender: PFIZER
  Company Number: GR-PFIZER INC-PV202500062851

PATIENT
  Age: 44 Year
  Sex: Female

DRUGS (4)
  1. TIGECYCLINE [Suspect]
     Active Substance: TIGECYCLINE
     Indication: Enterococcal infection
     Dosage: 50 MG, 2X/DAY (EVERY 12H)
     Route: 041
  2. TEICOPLANIN [Concomitant]
     Active Substance: TEICOPLANIN
     Indication: Device related infection
     Dosage: 200 MG, EOD (ALTERNATE DAY)
     Route: 042
  3. TEICOPLANIN [Concomitant]
     Active Substance: TEICOPLANIN
     Indication: Evidence based treatment
  4. TEICOPLANIN [Concomitant]
     Active Substance: TEICOPLANIN
     Indication: Enterococcal infection

REACTIONS (1)
  - Acute febrile neutrophilic dermatosis [Recovering/Resolving]
